FAERS Safety Report 9885702 (Version 2)
Quarter: 2014Q1

REPORT INFORMATION
  Report Type: Spontaneous
  Country: US (occurrence: US)
  Receive Date: 20140210
  Receipt Date: 20140321
  Transmission Date: 20141002
  Serious: No
  Sender: FDA-Public Use
  Company Number: US-PFIZER INC-2014034387

PATIENT
  Sex: Male

DRUGS (4)
  1. LIPITOR [Suspect]
     Dosage: UNK
  2. CELEBREX [Suspect]
     Dosage: UNK
  3. PRISTIQ [Suspect]
     Dosage: UNK
  4. PROTONIX [Suspect]
     Dosage: UNK

REACTIONS (5)
  - Erectile dysfunction [Unknown]
  - Weight decreased [Unknown]
  - Chondropathy [Unknown]
  - Back disorder [Unknown]
  - Arthralgia [Unknown]
